FAERS Safety Report 6196347-1 (Version None)
Quarter: 2009Q2

REPORT INFORMATION
  Report Type: 
  Country: None (occurrence: None)
  Receive Date: 20090520
  Receipt Date: 20070807
  Transmission Date: 20091009
  Serious: Yes (Other)
  Sender: FDA-Public Use
  Company Number: US-ASTRAZENECA-2006UW11065

PATIENT
  Age: 53 Year
  Sex: Female
  Weight: 85.3 kg

DRUGS (23)
  1. SEROQUEL [Suspect]
     Indication: ANXIETY
     Route: 048
     Dates: start: 19980101, end: 19990101
  2. SEROQUEL [Suspect]
     Indication: DEPRESSION
     Route: 048
     Dates: start: 19980101, end: 19990101
  3. SEROQUEL [Suspect]
     Dosage: 25MG, 100MG
     Route: 048
     Dates: start: 20010719
  4. SEROQUEL [Suspect]
     Dosage: 25MG, 100MG
     Route: 048
     Dates: start: 20010719
  5. ZYPREXA [Suspect]
  6. ZYPREXA [Suspect]
     Dosage: 2.5, 5 MG
     Route: 048
     Dates: start: 19990712, end: 20020826
  7. RISPERDAL [Concomitant]
  8. LISINOPRIL [Concomitant]
     Indication: HYPERTENSION
     Dosage: 10 MG , 20MG
     Route: 048
  9. HYDROCHLOROTHIAZIDE [Concomitant]
     Route: 048
  10. TOPROL-XL [Concomitant]
     Indication: BLOOD PRESSURE
     Dosage: 50 MG, 100 MG
     Route: 048
  11. TOPROL-XL [Concomitant]
     Indication: MITRAL VALVE PROLAPSE
     Dosage: 50 MG, 100 MG
     Route: 048
  12. ZOCOR [Concomitant]
     Route: 048
  13. EFFEXOR [Concomitant]
     Indication: PAIN
     Route: 048
  14. EFFEXOR [Concomitant]
     Indication: DEPRESSION
     Route: 048
  15. ASPIRIN [Concomitant]
  16. GLUCOPHAGE XR [Concomitant]
     Route: 048
     Dates: end: 20030905
  17. DIOVAN [Concomitant]
  18. PREVACID [Concomitant]
     Route: 048
  19. DEPAKOTE [Concomitant]
     Indication: NEURALGIA
     Dosage: 250 MG, 500MG
     Route: 048
  20. DEPAKOTE [Concomitant]
     Indication: HEADACHE
     Dosage: 250 MG, 500MG
     Route: 048
  21. SERZONE [Concomitant]
     Indication: ANXIETY
     Dosage: 150 MG, 200 MG
  22. SERZONE [Concomitant]
     Indication: DEPRESSION
     Dosage: 150 MG, 200 MG
  23. KLONOPIN [Concomitant]
     Indication: PANIC DISORDER

REACTIONS (28)
  - ABDOMINAL PAIN [None]
  - ARTERIOSCLEROSIS [None]
  - BACK PAIN [None]
  - BLOOD PRESSURE INCREASED [None]
  - BRONCHITIS [None]
  - CHEST PAIN [None]
  - DIVERTICULUM INTESTINAL [None]
  - EMBOLISM [None]
  - EPILEPSY [None]
  - FACIAL BONES FRACTURE [None]
  - FACIAL NEURALGIA [None]
  - FIBROUS HISTIOCYTOMA [None]
  - GASTRITIS [None]
  - HAEMATURIA [None]
  - HAEMORRHOIDS [None]
  - HYPOAESTHESIA [None]
  - MUSCULOSKELETAL PAIN [None]
  - OCCIPITAL NEURALGIA [None]
  - PAIN IN EXTREMITY [None]
  - PHARYNGITIS [None]
  - RECTAL HAEMORRHAGE [None]
  - SEBORRHOEIC KERATOSIS [None]
  - SINUSITIS [None]
  - SPINAL OSTEOARTHRITIS [None]
  - TYPE 2 DIABETES MELLITUS [None]
  - URINARY INCONTINENCE [None]
  - URINARY TRACT INFECTION [None]
  - VARICOSE VEIN [None]
